FAERS Safety Report 25818179 (Version 1)
Quarter: 2025Q3

REPORT INFORMATION
  Report Type: Spontaneous
  Country: US (occurrence: US)
  Receive Date: 20250918
  Receipt Date: 20250918
  Transmission Date: 20251020
  Serious: Yes (Hospitalization, Other)
  Sender: GLENMARK
  Company Number: US-MLMSERVICE-20250904-PI631667-00222-1

PATIENT
  Age: 87 Year
  Sex: Male

DRUGS (1)
  1. METRONIDAZOLE [Suspect]
     Active Substance: METRONIDAZOLE
     Indication: Antibiotic therapy
     Dosage: 1.5 GRAM, QD (METRONIDAZOLE-IN TOTAL, HE RECEIVED APPROXIMATELY 72 GRAMS OF METRONIDAZOLE DURING THI
     Route: 065

REACTIONS (2)
  - Toxic encephalopathy [Recovering/Resolving]
  - Vitamin B1 deficiency [Recovering/Resolving]
